FAERS Safety Report 5486917-8 (Version None)
Quarter: 2007Q4

REPORT INFORMATION
  Report Type: 
  Country: None (occurrence: None)
  Receive Date: 20071016
  Receipt Date: 20071004
  Transmission Date: 20080405
  Serious: Yes (Other)
  Sender: FDA-Public Use
  Company Number: NL-ROCHE-523267

PATIENT
  Sex: Male

DRUGS (2)
  1. PEGASYS [Suspect]
     Route: 065
     Dates: start: 20070713
  2. COPEGUS [Suspect]
     Route: 065
     Dates: start: 20070713

REACTIONS (2)
  - FACIAL PALSY [None]
  - THROMBOCYTOPENIA [None]
